FAERS Safety Report 4674107-8 (Version None)
Quarter: 2005Q2

REPORT INFORMATION
  Report Type: 
  Country: None (occurrence: None)
  Receive Date: 20050524
  Receipt Date: 20050524
  Transmission Date: 20051028
  Serious: Yes (Hospitalization)
  Sender: FDA-Public Use
  Company Number: None

PATIENT
  Age: 58 Year
  Sex: Male

DRUGS (5)
  1. GOLYTELY [Suspect]
     Indication: ASCITES
  2. GOLYTELY [Suspect]
     Indication: HEPATIC FAILURE
  3. GOLYTELY [Suspect]
     Indication: PORTAL HYPERTENSION
  4. ALDACTONE [Suspect]
  5. FUROSEMIDE [Suspect]

REACTIONS (7)
  - BLOOD PRESSURE SYSTOLIC DECREASED [None]
  - DEHYDRATION [None]
  - DIZZINESS POSTURAL [None]
  - HYPERKALAEMIA [None]
  - HYPOTENSION [None]
  - POLYURIA [None]
  - RENAL FAILURE ACUTE [None]
